FAERS Safety Report 23897559 (Version 1)
Quarter: 2024Q2

REPORT INFORMATION
  Report Type: Spontaneous
  Country: US (occurrence: US)
  Receive Date: 20240524
  Receipt Date: 20240524
  Transmission Date: 20240716
  Serious: No
  Sender: FDA-Public Use
  Company Number: US-Vifor (International) Inc.-VIT-2024-04666

PATIENT
  Age: 78 Year
  Sex: Male
  Weight: 120.38 kg

DRUGS (24)
  1. RAYALDEE [Suspect]
     Active Substance: CALCIFEDIOL
     Indication: Chronic kidney disease
     Route: 048
     Dates: start: 20240305
  2. RAYALDEE [Suspect]
     Active Substance: CALCIFEDIOL
     Indication: Hyperparathyroidism secondary
  3. RAYALDEE [Suspect]
     Active Substance: CALCIFEDIOL
     Indication: Vitamin D deficiency
  4. VELTASSA [Suspect]
     Active Substance: PATIROMER
     Indication: Product used for unknown indication
     Dosage: 16.8 GM PACKET, 1 PACKET DISSOLVED IN WATER ORALLY ONCE A DAY
     Route: 048
  5. ACETAMINOPHEN [Concomitant]
     Active Substance: ACETAMINOPHEN
     Dosage: 500 MG 1 TABLET AS NEEDED ORALLY EVERY 6 HOURS
  6. ALBUTEROL SULFATE [Concomitant]
     Active Substance: ALBUTEROL SULFATE
     Dosage: 108 (90 BASE) MCG/ ACT AEROSOL POWDER BREATH ACTIVATED 1 PUFF AS NEEDED Q4
  7. ASPIRIN [Concomitant]
     Active Substance: ASPIRIN
     Dosage: CHEWABLE TABLET 81 MG ORALLY ONCE A DAY
  8. CALCITRIOL [Concomitant]
     Active Substance: CALCITRIOL
     Dosage: THREE TIMES A WEEK M/W/F ORALLY
     Route: 048
  9. FARXIGA [Concomitant]
     Active Substance: DAPAGLIFLOZIN PROPANEDIOL
     Dosage: 10 MG TABLET ORALLY ONCE A DAY
     Route: 048
  10. CETIRIZINE HYDROCHLORIDE [Concomitant]
     Active Substance: CETIRIZINE HYDROCHLORIDE
  11. FINASTERIDE [Concomitant]
     Active Substance: FINASTERIDE
     Route: 048
  12. MORNIFLUMATE [Concomitant]
     Active Substance: MORNIFLUMATE
     Dosage: 0.4 MG CAPSULE ORALLY ONCE A DAY
     Route: 048
  13. FLUTICASONE FUROATE\UMECLIDINIUM BROMIDE\VILANTEROL TRIFENATATE [Concomitant]
     Active Substance: FLUTICASONE FUROATE\UMECLIDINIUM BROMIDE\VILANTEROL TRIFENATATE
     Dosage: 100-62.5-25 MCG/INH AEROSOL POWDER BREATH ACTIVATED 1 PUFF INHALATION ONCE A DAY
  14. LISINOPRIL [Concomitant]
     Active Substance: LISINOPRIL
     Dosage: 10 MG TABLET ORALLY EVERY EVENING
     Route: 048
  15. MIRALAX [Concomitant]
     Active Substance: POLYETHYLENE GLYCOL 3350
     Dosage: 17 GM PACKET MIXED WITH 8 OUNCES OF FLUID ORALLY ONCE A DAY
     Route: 048
  16. MAGNESIUM CITRATE [Concomitant]
     Active Substance: MAGNESIUM CITRATE
     Dosage: 200 MG TABLET AS DIRECTED ORALLY 250 MG DAILY
     Route: 048
  17. NITROGLYCERIN [Concomitant]
     Active Substance: NITROGLYCERIN
     Dosage: 0.4 MG SUBLINGUAL TABLET AS DIRECTED
  18. OXYBUTYNIN CHLORIDE [Concomitant]
     Active Substance: OXYBUTYNIN CHLORIDE
     Dosage: 5 MG TABLET, 1 TABLET IN THE AM AND 2 TABLET IN THE PM ORALLY
     Route: 048
  19. ROSUVASTATIN CALCIUM [Concomitant]
     Active Substance: ROSUVASTATIN CALCIUM
     Dosage: 20 MG CAPSULE, SPRINKLE 1 TABLET ORALLY ONCE A DAY
     Route: 048
  20. HERBALS\TURMERIC [Concomitant]
     Active Substance: HERBALS\TURMERIC
     Dosage: 500 MG CAPSULE ORALLY AS DIRECTED
     Route: 048
  21. ZETIA [Concomitant]
     Active Substance: EZETIMIBE
     Dosage: 10 MG TABLET ORALLY ONCE A DAY
     Route: 048
  22. CALCIUM CITRATE [Concomitant]
     Active Substance: CALCIUM CITRATE
  23. DIETARY SUPPLEMENT [Concomitant]
     Active Substance: DIETARY SUPPLEMENT
  24. MAGNESIUM OXIDE [Concomitant]
     Active Substance: MAGNESIUM OXIDE

REACTIONS (2)
  - Constipation [Unknown]
  - Dry mouth [Unknown]

NARRATIVE: CASE EVENT DATE: 20240101
